FAERS Safety Report 9388789 (Version 1)
Quarter: 2013Q3

REPORT INFORMATION
  Report Type: Spontaneous
  Country: FR (occurrence: FR)
  Receive Date: 20130708
  Receipt Date: 20130708
  Transmission Date: 20140515
  Serious: Yes (Death, Life-Threatening, Other)
  Sender: FDA-Public Use
  Company Number: PHHY2013FR070540

PATIENT
  Age: 65 Year
  Sex: 0

DRUGS (3)
  1. 5-FLUOROURACIL [Suspect]
     Indication: COLORECTAL CANCER
  2. OXALIPLATIN [Concomitant]
     Indication: COLORECTAL CANCER
  3. LEUCOVORIN [Concomitant]
     Indication: COLORECTAL CANCER

REACTIONS (7)
  - Toxicity to various agents [Fatal]
  - Febrile neutropenia [Unknown]
  - Renal failure [Unknown]
  - Mucosal inflammation [Unknown]
  - Dehydration [Unknown]
  - Diarrhoea [Unknown]
  - Sepsis [Unknown]
